FAERS Safety Report 7993879-8 (Version None)
Quarter: 2011Q4

REPORT INFORMATION
  Report Type: 
  Country: None (occurrence: None)
  Receive Date: 20111220
  Receipt Date: 20111209
  Transmission Date: 20120403
  Serious: Yes (Hospitalization)
  Sender: FDA-Public Use
  Company Number: US-AMGEN-USASP2011065882

PATIENT
  Age: 50 Year
  Sex: Female

DRUGS (6)
  1. METHOTREXATE [Concomitant]
     Dosage: 1 MG, QWK
     Dates: start: 20000101
  2. ENBREL [Suspect]
     Indication: ACUTE RESPIRATORY DISTRESS SYNDROME
  3. ENBREL [Suspect]
     Indication: PSORIATIC ARTHROPATHY
  4. ENBREL [Suspect]
     Indication: ASTHMA
  5. ENBREL [Suspect]
     Indication: PSORIASIS
  6. ENBREL [Suspect]
     Indication: RHEUMATOID ARTHRITIS
     Dosage: 50 MG, QWK
     Dates: start: 20060101, end: 20110830

REACTIONS (4)
  - PSORIASIS [None]
  - RHEUMATOID ARTHRITIS [None]
  - ACUTE RESPIRATORY DISTRESS SYNDROME [None]
  - TUBERCULIN TEST POSITIVE [None]
